FAERS Safety Report 7901293-6 (Version None)
Quarter: 2011Q4

REPORT INFORMATION
  Report Type: 
  Country: None (occurrence: None)
  Receive Date: 20111108
  Receipt Date: 20111031
  Transmission Date: 20120403
  Serious: Yes (Hospitalization, Other)
  Sender: FDA-Public Use
  Company Number: PHEH2009US03937

PATIENT
  Sex: Female

DRUGS (44)
  1. FOSAMAX [Suspect]
  2. CARDIZEM [Concomitant]
  3. RESTORIL [Concomitant]
  4. KLOR-CON [Concomitant]
  5. CYMBALTA [Concomitant]
     Dosage: 30 Q.A.M.
  6. CARDIOLITE [Concomitant]
  7. DARVOCET-N 50 [Concomitant]
  8. ASCORBIC ACID [Concomitant]
  9. ZOMETA [Suspect]
     Indication: METASTATIC NEOPLASM
     Dosage: 4 MG, MONTHLY
     Dates: start: 20061001
  10. LEVEMIR [Concomitant]
  11. FLUCONAZOLE [Concomitant]
  12. DEMADEX [Concomitant]
     Dosage: 20 MG
  13. CYMBALTA [Concomitant]
     Dosage: 60 MG BID
  14. MAGNESIUM OXIDE [Concomitant]
     Dosage: 400 MG 1 TAB ONCE DAILY
  15. CHEMOTHERAPEUTICS [Concomitant]
     Dates: start: 20080512
  16. GLUCOPHAGE [Concomitant]
     Dosage: 1000 BID
  17. COVERA-HS [Concomitant]
  18. ZOMETA [Suspect]
     Indication: BREAST CANCER METASTATIC
  19. FASLODEX [Concomitant]
  20. MUCINEX [Concomitant]
  21. CHLORZOXAZONE [Concomitant]
  22. ZYRTEC [Concomitant]
  23. ZANTAC [Concomitant]
  24. NOVOLOG [Concomitant]
  25. AMBIEN [Concomitant]
     Dosage: 12.5  I QHS
  26. CINNAMON [Concomitant]
     Dosage: 500 BID
  27. METOLAZONE [Concomitant]
     Dosage: 2.5 QOD
  28. ADENOSINE [Concomitant]
  29. PRANDIN [Concomitant]
     Dosage: 2 MG, TID
  30. NOLVADEX [Concomitant]
  31. AVANDIA [Concomitant]
  32. ASPIRIN [Concomitant]
  33. FENTANYL [Suspect]
     Dosage: 100 MCG
  34. LEXAPRO [Concomitant]
  35. LORTAB [Concomitant]
  36. LASIX [Concomitant]
     Dosage: 20 OD
  37. NORCO [Concomitant]
  38. INSULIN [Concomitant]
  39. ACCUPRIL [Concomitant]
  40. CIPROFLOXACIN [Concomitant]
  41. MEGESTROL ACETATE [Concomitant]
  42. MELOXICAM [Concomitant]
  43. METFORMIN HCL [Concomitant]
  44. NYSTATIN [Concomitant]
     Dosage: 5 ML FOUR TIMES DAILY

REACTIONS (72)
  - OEDEMA [None]
  - ANXIETY [None]
  - BRONCHITIS [None]
  - SCARLET FEVER [None]
  - PNEUMONIA [None]
  - HYPOKALAEMIA [None]
  - OSTEOARTHRITIS [None]
  - JOINT SWELLING [None]
  - CARDIAC FAILURE CONGESTIVE [None]
  - KIDNEY INFECTION [None]
  - RECTAL POLYP [None]
  - CHRONIC SINUSITIS [None]
  - PERIPHERAL SENSORY NEUROPATHY [None]
  - INSOMNIA [None]
  - SLEEP APNOEA SYNDROME [None]
  - PAIN [None]
  - CARDIAC MURMUR [None]
  - METASTASES TO BONE [None]
  - RUBELLA [None]
  - ASTHMA [None]
  - GOITRE [None]
  - VITAMIN D DECREASED [None]
  - GASTROOESOPHAGEAL REFLUX DISEASE [None]
  - GROIN PAIN [None]
  - CONTUSION [None]
  - FALL [None]
  - CHRONIC OBSTRUCTIVE PULMONARY DISEASE [None]
  - INJURY [None]
  - ARTHRITIS [None]
  - BONE LESION [None]
  - SKIN DISORDER [None]
  - CHOLELITHIASIS [None]
  - DIVERTICULUM INTESTINAL [None]
  - ACETABULUM FRACTURE [None]
  - DISABILITY [None]
  - BACK PAIN [None]
  - SEASONAL ALLERGY [None]
  - HAEMORRHOIDS [None]
  - PAIN IN EXTREMITY [None]
  - SCOLIOSIS [None]
  - ORAL INFECTION [None]
  - SWELLING FACE [None]
  - NECK INJURY [None]
  - ANHEDONIA [None]
  - MUMPS [None]
  - OSTEOPOROSIS [None]
  - NECK PAIN [None]
  - ARTERIOSCLEROSIS CORONARY ARTERY [None]
  - HEAD INJURY [None]
  - OSTEONECROSIS OF JAW [None]
  - OSTEITIS [None]
  - URTICARIA [None]
  - OSTEOPENIA [None]
  - CONSTIPATION [None]
  - DYSPNOEA EXERTIONAL [None]
  - LYMPHOEDEMA [None]
  - CARDIOMEGALY [None]
  - GINGIVAL PAIN [None]
  - POLLAKIURIA [None]
  - HEPATIC STEATOSIS [None]
  - SPINAL OSTEOARTHRITIS [None]
  - OBESITY [None]
  - FLUID OVERLOAD [None]
  - NEPHROLITHIASIS [None]
  - ABDOMINAL PAIN [None]
  - OEDEMA PERIPHERAL [None]
  - RASH [None]
  - GINGIVAL ERYTHEMA [None]
  - CARPAL TUNNEL SYNDROME [None]
  - DYSPEPSIA [None]
  - TENDONITIS [None]
  - TRANSIENT ISCHAEMIC ATTACK [None]
